FAERS Safety Report 18646190 (Version 2)
Quarter: 2020Q4

REPORT INFORMATION
  Report Type: Report from Study
  Country: FR (occurrence: FR)
  Receive Date: 20201222
  Receipt Date: 20201231
  Transmission Date: 20210114
  Serious: Yes (Hospitalization)
  Sender: FDA-Public Use
  Company Number: FR-ROCHE-2730359

PATIENT
  Age: 46 Year
  Sex: Female
  Weight: 41 kg

DRUGS (8)
  1. LARGACTIL [Concomitant]
     Active Substance: CHLORPROMAZINE
     Indication: NAUSEA
     Dosage: 3 DROP
     Route: 048
     Dates: start: 20201118
  2. ATEZOLIZUMAB. [Suspect]
     Active Substance: ATEZOLIZUMAB
     Indication: CERVIX CARCINOMA
     Dosage: THE DATE OF MOST RECENT DOSE WAS ON 18/NOV/2020
     Route: 042
     Dates: start: 20201005
  3. LARGACTIL [Concomitant]
     Active Substance: CHLORPROMAZINE
     Indication: VOMITING
  4. EXACYL [Concomitant]
     Active Substance: TRANEXAMIC ACID
     Indication: HAEMORRHAGE
     Route: 048
     Dates: start: 20201209
  5. BEVACIZUMAB. [Suspect]
     Active Substance: BEVACIZUMAB
     Indication: CERVIX CARCINOMA
     Dosage: THE DATE OF MOST RECENT DOSE WAS ON 18/NOV/2020?THE DOSE OF BEVACIZUMAB WAS 615 MG
     Route: 042
     Dates: start: 20201005
  6. SKENAN [Concomitant]
     Active Substance: MORPHINE SULFATE
     Indication: ABDOMINAL PAIN
     Route: 048
     Dates: start: 202011
  7. PARACETAMOL [Concomitant]
     Active Substance: ACETAMINOPHEN
     Indication: ABDOMINAL PAIN
     Route: 048
  8. MOVICOL [Concomitant]
     Active Substance: POLYETHYLENE GLYCOL 3350\POTASSIUM CHLORIDE\SODIUM BICARBONATE\SODIUM CHLORIDE
     Indication: CONSTIPATION
     Route: 048

REACTIONS (2)
  - Metrorrhagia [Not Recovered/Not Resolved]
  - Vaginal haemorrhage [Recovered/Resolved]

NARRATIVE: CASE EVENT DATE: 20201207
